FAERS Safety Report 22602296 (Version 1)
Quarter: 2023Q2

REPORT INFORMATION
  Report Type: Report from Study
  Country: CN (occurrence: CN)
  Receive Date: 20230614
  Receipt Date: 20230614
  Transmission Date: 20230721
  Serious: Yes (Hospitalization)
  Sender: FDA-Public Use
  Company Number: CN-MIRATI-MT2023CT04177

PATIENT

DRUGS (4)
  1. ADAGRASIB [Suspect]
     Active Substance: ADAGRASIB
     Indication: Colorectal cancer
     Dosage: 600 MG, BID
     Route: 048
     Dates: start: 20230509
  2. ADAGRASIB [Suspect]
     Active Substance: ADAGRASIB
     Dosage: 600 MG, QD
     Route: 048
     Dates: end: 20230605
  3. ERBITUX [Suspect]
     Active Substance: CETUXIMAB
     Indication: Colorectal cancer
     Dosage: 500 MG/M2, QD
     Route: 042
     Dates: start: 20230509, end: 20230524
  4. GLUTATHIONE [Concomitant]
     Active Substance: GLUTATHIONE
     Indication: Prophylaxis
     Dosage: 0.3 G, QD
     Route: 048
     Dates: start: 202301

REACTIONS (1)
  - Rash [Not Recovered/Not Resolved]

NARRATIVE: CASE EVENT DATE: 20230606
